FAERS Safety Report 8701936 (Version 2)
Quarter: 2012Q4

REPORT INFORMATION
  Report Type: 
  Country: US (occurrence: US)
  Receive Date: 20120803
  Receipt Date: 20120912
  Transmission Date: 20130627
  Serious: No
  Sender: FDA-Public Use
  Company Number: US-SHIRE-ALL1-2012-03606

PATIENT
  Age: 11 Year
  Sex: Male
  Weight: 41.3 kg

DRUGS (3)
  1. ELAPRASE [Suspect]
     Indication: MUCOPOLYSACCHARIDOSIS II
     Dosage: 24 mg, 1x/week
     Route: 041
     Dates: start: 20070108
  2. RISPERDAL [Concomitant]
     Indication: AGGRESSION
     Dosage: 2 mg, Unknown
     Route: 065
     Dates: start: 20100416
  3. ENALAPRIL [Concomitant]
     Indication: CONGENITAL HEART VALVE DISORDER
     Dosage: 1 mg, 2x/day:bid
     Route: 065
     Dates: start: 20090506

REACTIONS (7)
  - Urine odour abnormal [Recovered/Resolved]
  - Restlessness [Recovered/Resolved]
  - Crying [Recovered/Resolved]
  - Lethargy [Recovered/Resolved]
  - Adverse event [Recovered/Resolved]
  - Pyrexia [Recovered/Resolved]
  - Infusion related reaction [Recovered/Resolved]
